FAERS Safety Report 12100191 (Version 2)
Quarter: 2016Q1

REPORT INFORMATION
  Report Type: Spontaneous
  Country: None (occurrence: FR)
  Receive Date: 20160222
  Receipt Date: 20160307
  Transmission Date: 20160526
  Serious: Yes (Death, Hospitalization, Other)
  Sender: FDA-Public Use
  Company Number: FR-MEDAC PHARMA, INC.-1048187

PATIENT
  Age: 60 Year
  Sex: Male

DRUGS (17)
  1. METOJECT [Suspect]
     Active Substance: METHOTREXATE SODIUM
     Route: 058
     Dates: start: 201110, end: 201112
  2. AMIKIN [Concomitant]
     Active Substance: AMIKACIN SULFATE
     Dates: start: 20121107
  3. OFLOXACIN. [Concomitant]
     Active Substance: OFLOXACIN
  4. CANCIDAS [Concomitant]
     Active Substance: CASPOFUNGIN ACETATE
  5. IMIPENEM AND CILASTATIN [Concomitant]
     Active Substance: CILASTATIN SODIUM\IMIPENEM
  6. INEXIUM [Concomitant]
     Active Substance: ESOMEPRAZOLE
  7. ENBREL [Suspect]
     Active Substance: ETANERCEPT
     Route: 058
     Dates: start: 201203, end: 201209
  8. ENBREL [Suspect]
     Active Substance: ETANERCEPT
     Route: 058
     Dates: start: 201209, end: 201210
  9. CLOBETASOL PROPIONATE. [Suspect]
     Active Substance: CLOBETASOL PROPIONATE
     Route: 003
     Dates: start: 1999, end: 201202
  10. PIPERACILLIN, TAZOBACTAM [Concomitant]
     Active Substance: PIPERACILLIN SODIUM\TAZOBACTAM SODIUM
  11. ACYCLOVIR. [Concomitant]
     Active Substance: ACYCLOVIR
     Route: 042
     Dates: start: 20121026, end: 20121104
  12. VANCOMYCIN HYDROCHLORIDE. [Concomitant]
     Active Substance: VANCOMYCIN HYDROCHLORIDE
  13. METOJECT [Suspect]
     Active Substance: METHOTREXATE SODIUM
     Indication: PSORIASIS
     Route: 058
     Dates: start: 201112, end: 20120104
  14. SORIATANE [Suspect]
     Active Substance: ACITRETIN
     Route: 048
     Dates: start: 1999, end: 2011
  15. VFEND [Concomitant]
     Active Substance: VORICONAZOLE
  16. ROVAMYCINE [Concomitant]
     Active Substance: SPIRAMYCIN
  17. AUGMENTIN [Concomitant]
     Active Substance: AMOXICILLIN\CLAVULANATE POTASSIUM

REACTIONS (7)
  - Acute myeloid leukaemia [Fatal]
  - Enterobacter test positive [None]
  - Pulmonary mass [None]
  - Haematotoxicity [Not Recovered/Not Resolved]
  - Psoriasis [None]
  - Pneumonia klebsiella [None]
  - Simplex virus test positive [None]

NARRATIVE: CASE EVENT DATE: 201112
